FAERS Safety Report 5515475-4 (Version None)
Quarter: 2007Q4

REPORT INFORMATION
  Report Type: 
  Country: None (occurrence: None)
  Receive Date: 20071113
  Receipt Date: 20070227
  Transmission Date: 20080405
  Serious: No
  Sender: FDA-Public Use
  Company Number: A0641175A

PATIENT
  Age: 82 Year
  Sex: Male

DRUGS (10)
  1. COREG [Suspect]
     Indication: DRUG USE FOR UNKNOWN INDICATION
     Route: 048
     Dates: start: 20061101, end: 20061101
  2. ADVAIR DISKUS 100/50 [Concomitant]
  3. TOPROL-XL [Concomitant]
  4. COMBIVENT [Concomitant]
  5. HYDROCHLOROTHIAZIDE [Concomitant]
  6. PREDNISONE [Concomitant]
  7. LYRICA [Concomitant]
  8. AZOPT [Concomitant]
  9. TRAVATAN [Concomitant]
  10. PRED FORTE [Concomitant]

REACTIONS (1)
  - DIARRHOEA [None]
